FAERS Safety Report 25953207 (Version 1)
Quarter: 2025Q4

REPORT INFORMATION
  Report Type: Spontaneous
  Country: US (occurrence: US)
  Receive Date: 20251023
  Receipt Date: 20251023
  Transmission Date: 20260119
  Serious: No
  Sender: MSN LABORATORIES PRIVATE LIMITED
  Company Number: US-MSNLABS-2025MSNSPO02982

PATIENT

DRUGS (1)
  1. PREGABALIN [Suspect]
     Active Substance: PREGABALIN
     Indication: Polyneuropathy
     Dosage: 25 MG IN MORNING AND 75 MG AT NIGHT (TWO TABLETS/CAPSULES)
     Route: 048

REACTIONS (5)
  - Emotional distress [Unknown]
  - Incorrect dose administered [Unknown]
  - Product dose confusion [Unknown]
  - Somnolence [Unknown]
  - Fatigue [Unknown]
